FAERS Safety Report 8486423-2 (Version None)
Quarter: 2012Q3

REPORT INFORMATION
  Report Type: 
  Country: None (occurrence: None)
  Receive Date: 20120703
  Receipt Date: 20120619
  Transmission Date: 20120928
  Serious: Yes (Other)
  Sender: FDA-Public Use
  Company Number: CHPA2012US013352

PATIENT
  Age: 73 Year
  Sex: Female

DRUGS (3)
  1. EXCEDRIN (MIGRAINE) [Suspect]
     Dosage: UNK, UNK
     Route: 048
  2. EXCEDRIN TENSION HEADACHE CAPLETS [Suspect]
     Indication: PAIN
     Dosage: 1 DF, QD
     Route: 048
  3. EXCEDRIN TENSION HEADACHE CAPLETS [Suspect]
     Dosage: 2 DF, QD
     Route: 048

REACTIONS (1)
  - PNEUMONIA [None]
